FAERS Safety Report 5949306-5 (Version None)
Quarter: 2008Q4

REPORT INFORMATION
  Report Type: 
  Country: None (occurrence: None)
  Receive Date: 20081021
  Receipt Date: 20080228
  Transmission Date: 20090506
  Serious: Yes (Hospitalization, Other)
  Sender: FDA-Public Use
  Company Number: HQWYE993022OCT04

PATIENT
  Age: 54 Year
  Sex: Female

DRUGS (3)
  1. PREMARIN [Suspect]
  2. MEDROXYPROGESTERONE [Suspect]
  3. PROVERA [Suspect]

REACTIONS (6)
  - ARTHRITIS [None]
  - BONE PAIN [None]
  - BREAST CANCER [None]
  - CONDITION AGGRAVATED [None]
  - MYALGIA [None]
  - MYOCARDIAL INFARCTION [None]
